FAERS Safety Report 8160153-9 (Version None)
Quarter: 2012Q1

REPORT INFORMATION
  Report Type: 
  Country: None (occurrence: None)
  Receive Date: 20120223
  Receipt Date: 20120217
  Transmission Date: 20120608
  Serious: Yes (Death, Hospitalization)
  Sender: FDA-Public Use
  Company Number: JP-ELI_LILLY_AND_COMPANY-JP201201007143

PATIENT
  Sex: Female
  Weight: 50 kg

DRUGS (15)
  1. MOTILIUM [Concomitant]
  2. GEMZAR [Suspect]
     Indication: PANCREATIC CARCINOMA
     Dosage: 1400 MG, OTHER
     Route: 042
     Dates: start: 20111104, end: 20120113
  3. ETICALM [Concomitant]
     Dosage: 0.5 MG, QD
     Route: 048
     Dates: start: 20111209
  4. SULCAIN [Concomitant]
  5. AMLODIPINE [Concomitant]
     Dosage: 5 MG, QD
     Route: 048
     Dates: start: 20111029
  6. ORGADRONE [Concomitant]
     Dosage: 2 IU, UNK
  7. SODIUM ALGINATE [Concomitant]
  8. SENNOSIDE A+B CALCIUM [Concomitant]
     Dosage: 24 MG, QD
     Route: 048
     Dates: start: 20111209
  9. MORPHINE [Concomitant]
     Dosage: 1 DF, UNK
     Route: 048
     Dates: start: 20111102
  10. OXYCONTIN [Concomitant]
     Dosage: 5 MG, BID
     Route: 048
     Dates: start: 20111102
  11. LIPITOR [Concomitant]
  12. RINDERON                           /00008501/ [Concomitant]
     Dosage: 0.5 MG, BID
     Route: 048
     Dates: start: 20111109
  13. MIRADOL [Concomitant]
     Dosage: 50 MG, TID
     Route: 048
     Dates: start: 20111109
  14. MAGNESIUM SULFATE [Concomitant]
     Dosage: 660 MG, TID
     Route: 048
     Dates: start: 20111029
  15. RABEPRAZOLE SODIUM [Concomitant]

REACTIONS (3)
  - INTERSTITIAL LUNG DISEASE [None]
  - DECREASED APPETITE [None]
  - CHILLS [None]
